FAERS Safety Report 19512297 (Version 1)
Quarter: 2021Q3

REPORT INFORMATION
  Report Type: Spontaneous
  Country: TW (occurrence: TW)
  Receive Date: 20210709
  Receipt Date: 20210709
  Transmission Date: 20211014
  Serious: Yes (Death, Life-Threatening, Other)
  Sender: FDA-Public Use
  Company Number: TW-ELI_LILLY_AND_COMPANY-TW202107001981

PATIENT
  Age: 48 Year
  Sex: Female

DRUGS (3)
  1. VERZENIO [Suspect]
     Active Substance: ABEMACICLIB
     Dosage: 100 MG, DAILY
     Route: 065
  2. VERZENIO [Suspect]
     Active Substance: ABEMACICLIB
     Indication: BREAST CANCER STAGE IV
     Dosage: 100 MG, BID
     Route: 065
     Dates: start: 20201224
  3. FULVESTRANT. [Concomitant]
     Active Substance: FULVESTRANT
     Indication: BREAST CANCER STAGE IV
     Dosage: UNK, UNKNOWN
     Dates: start: 20201224

REACTIONS (6)
  - Septic shock [Unknown]
  - Hepatic failure [Fatal]
  - Thrombocytopenia [Unknown]
  - Neutropenia [Unknown]
  - Necrotising fasciitis [Unknown]
  - Diarrhoea [Unknown]
